FAERS Safety Report 5911236-2 (Version None)
Quarter: 2008Q4

REPORT INFORMATION
  Report Type: 
  Country: None (occurrence: None)
  Receive Date: 20081007
  Receipt Date: 20080925
  Transmission Date: 20090506
  Serious: Yes (Other)
  Sender: FDA-Public Use
  Company Number: US-AVENTIS-200718383US

PATIENT
  Sex: Male
  Weight: 120 kg

DRUGS (3)
  1. KETEK [Suspect]
     Dates: start: 20060613, end: 20060618
  2. KETEK [Suspect]
     Dosage: DOSE: UNK
     Dates: start: 20060711
  3. VITAMINS [Concomitant]
     Dosage: DOSE: UNK

REACTIONS (19)
  - ABDOMINAL DISCOMFORT [None]
  - BACK PAIN [None]
  - CHROMATURIA [None]
  - DARK CIRCLES UNDER EYES [None]
  - DECREASED APPETITE [None]
  - DIARRHOEA [None]
  - DYSURIA [None]
  - EOSINOPHILIA [None]
  - FATIGUE [None]
  - HEPATIC ENZYME INCREASED [None]
  - HEPATIC STEATOSIS [None]
  - HEPATITIS [None]
  - HOT FLUSH [None]
  - OCCULT BLOOD POSITIVE [None]
  - PROTHROMBIN TIME PROLONGED [None]
  - PYREXIA [None]
  - VOMITING [None]
  - WEIGHT DECREASED [None]
  - YELLOW SKIN [None]
